FAERS Safety Report 8286410-3 (Version None)
Quarter: 2012Q2

REPORT INFORMATION
  Report Type: 
  Country: None (occurrence: None)
  Receive Date: 20120411
  Receipt Date: 20120411
  Transmission Date: 20120825
  Serious: Yes (Other)
  Sender: FDA-Public Use
  Company Number: None

PATIENT
  Sex: Female
  Weight: 62.5964 kg

DRUGS (1)
  1. PROLIA [Suspect]
     Dosage: INJECTION
     Route: 042

REACTIONS (2)
  - RASH [None]
  - FUNGAL INFECTION [None]
